FAERS Safety Report 4471313-2 (Version None)
Quarter: 2004Q4

REPORT INFORMATION
  Report Type: 
  Country: None (occurrence: None)
  Receive Date: 20041011
  Receipt Date: 20041006
  Transmission Date: 20050328
  Serious: Yes (Hospitalization)
  Sender: FDA-Public Use
  Company Number: US-MERCK-0410USA00975

PATIENT
  Sex: Female

DRUGS (9)
  1. ATENOLOL [Concomitant]
     Route: 065
  2. HYDROCHLOROTHIAZIDE [Concomitant]
     Route: 065
  3. SYNTHROID [Concomitant]
     Route: 065
  4. METFORMIN [Concomitant]
     Route: 065
  5. GLUCOPHAGE [Concomitant]
     Route: 065
  6. ACTOS [Concomitant]
     Route: 065
  7. VIOXX [Suspect]
     Indication: ARTHRALGIA
     Route: 048
  8. VIOXX [Suspect]
     Indication: ARTHRITIS
     Route: 048
  9. DIOVAN [Concomitant]
     Route: 065

REACTIONS (2)
  - BLOOD PRESSURE INCREASED [None]
  - MOUTH INJURY [None]
